FAERS Safety Report 5168886-3 (Version None)
Quarter: 2006Q4

REPORT INFORMATION
  Report Type: 
  Country: None (occurrence: None)
  Receive Date: 20061211
  Receipt Date: 20060526
  Transmission Date: 20070319
  Serious: Yes (Hospitalization)
  Sender: FDA-Public Use
  Company Number: JP-BAYER-200610692BYL

PATIENT
  Age: 55 Year
  Sex: Male

DRUGS (2)
  1. CIPROXAN200 [Suspect]
     Indication: SEMINAL VESICULITIS
     Dosage: TOTAL DAILY DOSE: 300 MG  UNIT DOSE: 100 MG
     Route: 048
     Dates: start: 20060513, end: 20060525
  2. GASMOTIN [Concomitant]
     Indication: GASTRITIS PROPHYLAXIS
     Route: 048
     Dates: start: 20060513, end: 20060525

REACTIONS (5)
  - BLISTER [None]
  - DRUG ERUPTION [None]
  - MALAISE [None]
  - PYREXIA [None]
  - RASH PUSTULAR [None]
